FAERS Safety Report 22655656 (Version 1)
Quarter: 2023Q2

REPORT INFORMATION
  Report Type: Spontaneous
  Country: CN (occurrence: CN)
  Receive Date: 20230629
  Receipt Date: 20230629
  Transmission Date: 20230721
  Serious: Yes (Other)
  Sender: FDA-Public Use
  Company Number: CN-PFIZER INC-PV202300110956

PATIENT
  Age: 60 Year
  Sex: Female
  Weight: 58 kg

DRUGS (9)
  1. EPIRUBICIN HYDROCHLORIDE [Suspect]
     Active Substance: EPIRUBICIN HYDROCHLORIDE
     Indication: Hepatic cancer
     Dosage: 10 MG, 1X/DAY
     Route: 013
     Dates: start: 20230609, end: 20230609
  2. EPIRUBICIN HYDROCHLORIDE [Suspect]
     Active Substance: EPIRUBICIN HYDROCHLORIDE
     Dosage: 30 MG, 1X/DAY
     Route: 013
     Dates: start: 20230609, end: 20230609
  3. OXALIPLATIN [Suspect]
     Active Substance: OXALIPLATIN
     Indication: Hepatic cancer
     Dosage: 200 MG, 1X/DAY
     Route: 013
     Dates: start: 20230609, end: 20230609
  4. FLUOROURACIL [Suspect]
     Active Substance: FLUOROURACIL
     Indication: Hepatic cancer
     Dosage: 0.25 G, 1X/DAY
     Route: 013
     Dates: start: 20230609, end: 20230609
  5. FLUOROURACIL [Suspect]
     Active Substance: FLUOROURACIL
     Dosage: 0.75 G, 1X/DAY
     Route: 013
     Dates: start: 20230609, end: 20230609
  6. IODINE [Suspect]
     Active Substance: IODINE
     Indication: Imaging procedure
     Dosage: 2 ML, 1X/DAY
     Route: 013
     Dates: start: 20230609, end: 20230609
  7. IODINE [Suspect]
     Active Substance: IODINE
     Indication: X-ray
  8. SODIUM CHLORIDE [Concomitant]
     Active Substance: SODIUM CHLORIDE
     Indication: Vehicle solution use
     Dosage: 150 ML, 1X/DAY
     Route: 013
     Dates: start: 20230609, end: 20230609
  9. DEXTROSE [Concomitant]
     Active Substance: DEXTROSE\DEXTROSE MONOHYDRATE
     Indication: Vehicle solution use
     Dosage: 150 ML, 1X/DAY
     Route: 013
     Dates: start: 20230609, end: 20230609

REACTIONS (7)
  - Abdominal pain [Recovered/Resolved]
  - Abdominal distension [Recovered/Resolved]
  - Nausea [Recovered/Resolved]
  - Vomiting [Recovered/Resolved]
  - Off label use [Unknown]
  - Off label use [Unknown]
  - Product preparation issue [Unknown]

NARRATIVE: CASE EVENT DATE: 20230609
